FAERS Safety Report 6201274-7 (Version None)
Quarter: 2009Q2

REPORT INFORMATION
  Report Type: 
  Country: None (occurrence: None)
  Receive Date: 20090526
  Receipt Date: 20090514
  Transmission Date: 20091009
  Serious: Yes (Other)
  Sender: FDA-Public Use
  Company Number: PHHY2009GB04981

PATIENT
  Sex: Male

DRUGS (1)
  1. CLOZARIL [Suspect]
     Indication: SCHIZOPHRENIA
     Dosage: 200 MG, UNK
     Route: 048
     Dates: start: 20090114

REACTIONS (7)
  - CARDIAC FAILURE [None]
  - CARDIAC MURMUR [None]
  - DYSPNOEA [None]
  - HYPERHIDROSIS [None]
  - HYPOVENTILATION [None]
  - POOR PERIPHERAL CIRCULATION [None]
  - URINARY TRACT INFECTION [None]
